FAERS Safety Report 19991804 (Version 2)
Quarter: 2022Q1

REPORT INFORMATION
  Report Type: Spontaneous
  Country: US (occurrence: US)
  Receive Date: 20211025
  Receipt Date: 20220223
  Transmission Date: 20220423
  Serious: No
  Sender: FDA-Public Use
  Company Number: US-PFIZER INC-202100960410

PATIENT
  Age: 44 Year
  Sex: Female

DRUGS (2)
  1. IBRANCE [Suspect]
     Active Substance: PALBOCICLIB
     Indication: Breast cancer female
     Dosage: 125 MG, CYCLIC (ONCE DAILY FOR 21 DAYS)
     Route: 048
     Dates: start: 20210728
  2. IBRANCE [Suspect]
     Active Substance: PALBOCICLIB
     Dosage: 100 MG
     Dates: start: 20210922

REACTIONS (3)
  - Fatigue [Not Recovered/Not Resolved]
  - White blood cell count decreased [Unknown]
  - Dry skin [Unknown]
